FAERS Safety Report 7700299-X (Version None)
Quarter: 2011Q3

REPORT INFORMATION
  Report Type: 
  Country: None (occurrence: None)
  Receive Date: 20110822
  Receipt Date: 20110809
  Transmission Date: 20111222
  Serious: No
  Sender: FDA-Public Use
  Company Number: PHEH2011US01388

PATIENT
  Sex: Female

DRUGS (4)
  1. POTASSIUM CHLORIDE [Concomitant]
  2. SIMAVASTATIN [Concomitant]
  3. TASIGNA [Suspect]
     Indication: CHRONIC MYELOID LEUKAEMIA
     Dosage: 400 MG, BID
     Route: 048
  4. FUROSEMIDE [Concomitant]
     Dosage: UNK

REACTIONS (1)
  - HAEMATEMESIS [None]
